FAERS Safety Report 15067107 (Version 1)
Quarter: 2018Q2

REPORT INFORMATION
  Report Type: Spontaneous
  Country: DE (occurrence: DE)
  Receive Date: 20180626
  Receipt Date: 20180626
  Transmission Date: 20180711
  Serious: Yes (Other)
  Sender: FDA-Public Use
  Company Number: DE-GLAXOSMITHKLINE-DE2018108274

PATIENT
  Sex: Female

DRUGS (1)
  1. DICLOFENAC [Suspect]
     Active Substance: DICLOFENAC
     Indication: OSTEOARTHRITIS
     Dosage: 7.5 MILLIGRAM DAILY;
     Route: 065
     Dates: start: 201803

REACTIONS (2)
  - Atrial fibrillation [Unknown]
  - Abdominal pain upper [Unknown]
